FAERS Safety Report 8590358-4 (Version None)
Quarter: 2012Q3

REPORT INFORMATION
  Report Type: 
  Country: None (occurrence: None)
  Receive Date: 20120813
  Receipt Date: 20120808
  Transmission Date: 20120928
  Serious: Yes (Other)
  Sender: FDA-Public Use
  Company Number: BR-PFIZER INC-2012194269

PATIENT
  Age: 58 Year
  Sex: Male
  Weight: 115 kg

DRUGS (1)
  1. ATORVASTATIN CALCIUM [Suspect]
     Dosage: 80 MG, 1X/DAY
     Route: 048
     Dates: start: 20020808

REACTIONS (1)
  - INFARCTION [None]
